FAERS Safety Report 18267382 (Version 2)
Quarter: 2020Q3

REPORT INFORMATION
  Report Type: Spontaneous
  Country: US (occurrence: US)
  Receive Date: 20200915
  Receipt Date: 20200918
  Transmission Date: 20201103
  Serious: Yes (Other)
  Sender: FDA-Public Use
  Company Number: US-GLAXOSMITHKLINE-US2020183501

PATIENT
  Sex: Female

DRUGS (1)
  1. NUCALA [Suspect]
     Active Substance: MEPOLIZUMAB
     Indication: ASTHMA
     Dosage: 100 MG, CYC
     Route: 065
     Dates: start: 202007, end: 20200709

REACTIONS (4)
  - Social problem [Unknown]
  - COVID-19 [Unknown]
  - Coronavirus test positive [Unknown]
  - Product dose omission issue [Unknown]
